FAERS Safety Report 8774305 (Version 2)
Quarter: 2012Q4

REPORT INFORMATION
  Report Type: 
  Country: US (occurrence: US)
  Receive Date: 20120907
  Receipt Date: 20120926
  Transmission Date: 20130627
  Serious: No
  Sender: FDA-Public Use
  Company Number: US-PFIZER INC-2012219498

PATIENT
  Age: 71 Year
  Sex: Female

DRUGS (4)
  1. NEURONTIN [Suspect]
     Indication: NEUROPATHY PERIPHERAL
     Dosage: 300 mg, 3x/day
     Route: 048
     Dates: end: 20120814
  2. DIAZEPAM [Concomitant]
     Indication: ANXIETY
     Dosage: 5 mg, as needed
  3. ATENOLOL [Concomitant]
     Indication: HYPERTENSION
     Dosage: 25 mg, 1x/day
  4. HYDROCODONE W/ACETAMINOPHEN [Concomitant]
     Indication: PAIN
     Dosage: 7.5/325 (no units provided) as needed

REACTIONS (1)
  - Drug ineffective [Unknown]
